FAERS Safety Report 8829366 (Version 4)
Quarter: 2013Q3

REPORT INFORMATION
  Report Type: Report from Study
  Country: JP (occurrence: JP)
  Receive Date: 20121008
  Receipt Date: 20130913
  Transmission Date: 20140515
  Serious: Yes (Other)
  Sender: FDA-Public Use
  Company Number: JP-VERTEX PHARMACEUTICAL INC.-2012-022354

PATIENT
  Age: 70 Year
  Sex: Male

DRUGS (9)
  1. VX-950 (TELAPREVIR) [Suspect]
     Indication: CHRONIC HEPATITIS C
     Dosage: 1500 MG, QD
     Route: 048
     Dates: start: 20120802, end: 20120829
  2. VX-950 (TELAPREVIR) [Suspect]
     Dosage: 1000 MG, QD
     Route: 048
     Dates: start: 20120830, end: 20121024
  3. RIBAVIRIN [Suspect]
     Indication: CHRONIC HEPATITIS C
     Dosage: 400 MG, QD
     Route: 048
     Dates: start: 20120802, end: 20120912
  4. RIBAVIRIN [Suspect]
     Dosage: 200 MG, 400 MG/ ON ALTERNATE DAYS
     Route: 048
     Dates: start: 20120913, end: 20130117
  5. PEGINTERFERON ALFA-2B [Suspect]
     Indication: CHRONIC HEPATITIS C
     Dosage: 0.9 ?G/KG, QW
     Route: 058
     Dates: start: 20120802, end: 20121206
  6. PEGINTERFERON ALFA-2B [Suspect]
     Dosage: 1.2 ?G/KG, QW
     Route: 058
     Dates: start: 20121213, end: 20130110
  7. SELBEX [Concomitant]
     Dosage: 150 MG, QD
     Route: 048
     Dates: start: 20120802
  8. LOCHOL [Concomitant]
     Dosage: 20 MG, QD
     Route: 048
     Dates: start: 20120802
  9. ZYLORIC [Concomitant]
     Dosage: 200 MG, QD
     Route: 048

REACTIONS (1)
  - Syncope [Recovered/Resolved]
